FAERS Safety Report 13706800 (Version 5)
Quarter: 2024Q1

REPORT INFORMATION
  Report Type: Spontaneous
  Country: US (occurrence: US)
  Receive Date: 20170630
  Receipt Date: 20240209
  Transmission Date: 20240410
  Serious: No
  Sender: FDA-Public Use
  Company Number: US-JNJFOC-20170616660

PATIENT
  Sex: Male

DRUGS (8)
  1. RISPERDAL CONSTA [Suspect]
     Active Substance: RISPERIDONE
     Indication: Anger
     Route: 030
     Dates: start: 20150520, end: 20160120
  2. RISPERDAL CONSTA [Suspect]
     Active Substance: RISPERIDONE
     Indication: Aggression
  3. RISPERDAL CONSTA [Suspect]
     Active Substance: RISPERIDONE
  4. RISPERDAL CONSTA [Suspect]
     Active Substance: RISPERIDONE
  5. RISPERDAL [Suspect]
     Active Substance: RISPERIDONE
     Indication: Anger
     Dosage: VARYING DOSES OF 0.5 MG AND 2 MG AND VARYING FREQUENCIES
     Route: 048
     Dates: start: 20130605, end: 20140319
  6. RISPERDAL [Suspect]
     Active Substance: RISPERIDONE
     Indication: Aggression
     Dosage: VARYING DOSES OF 0.5 MG AND 2 MG AND VARYING FREQUENCIES
     Route: 048
     Dates: start: 20150520, end: 2016
  7. RISPERDAL [Suspect]
     Active Substance: RISPERIDONE
     Indication: Affective disorder
  8. RISPERIDONE [Suspect]
     Active Substance: RISPERIDONE
     Indication: Product used for unknown indication
     Dosage: VARYING DOSES OF 1 AND 2 MG
     Route: 048

REACTIONS (2)
  - Gynaecomastia [Unknown]
  - Emotional distress [Unknown]
